FAERS Safety Report 7355832-7 (Version None)
Quarter: 2011Q1

REPORT INFORMATION
  Report Type: 
  Country: None (occurrence: None)
  Receive Date: 20110316
  Receipt Date: 20110311
  Transmission Date: 20110831
  Serious: Yes (Other)
  Sender: FDA-Public Use
  Company Number: AR-PFIZER INC-2011033477

PATIENT
  Age: 8 Year
  Sex: Female
  Weight: 35 kg

DRUGS (1)
  1. IBUPIRAC [Suspect]
     Indication: PYREXIA
     Dosage: 4 ML, 3X/DAY
     Route: 048
     Dates: start: 20110211, end: 20110213

REACTIONS (1)
  - BODY TEMPERATURE DECREASED [None]
